FAERS Safety Report 9763876 (Version 1)
Quarter: 2013Q4

REPORT INFORMATION
  Report Type: Spontaneous
  Country: US (occurrence: US)
  Receive Date: 20131216
  Receipt Date: 20131216
  Transmission Date: 20140711
  Serious: No
  Sender: FDA-Public Use
  Company Number: US-BIOGENIDEC-2013BI115746

PATIENT
  Age: 47 Year
  Sex: Female

DRUGS (6)
  1. TECFIDERA [Suspect]
     Indication: PRODUCT USED FOR UNKNOWN INDICATION
     Route: 048
  2. TECFIDERA [Suspect]
     Indication: PRODUCT USED FOR UNKNOWN INDICATION
     Route: 048
  3. SERTRALINE [Concomitant]
  4. PROMETHAZINE [Concomitant]
  5. ASA LOW [Concomitant]
  6. ZYRTEC [Concomitant]

REACTIONS (4)
  - Headache [Unknown]
  - Gastric disorder [Unknown]
  - Drug intolerance [Unknown]
  - Flushing [Unknown]
